FAERS Safety Report 10179039 (Version 1)
Quarter: 2014Q2

REPORT INFORMATION
  Report Type: Spontaneous
  Country: US (occurrence: US)
  Receive Date: 20140519
  Receipt Date: 20140519
  Transmission Date: 20141212
  Serious: No
  Sender: FDA-Public Use
  Company Number: US-BIOGENIDEC-2014BI042089

PATIENT
  Age: 70 Year
  Sex: Male

DRUGS (12)
  1. TECFIDERA [Suspect]
     Indication: MULTIPLE SCLEROSIS
     Route: 048
  2. COUMADIN [Concomitant]
  3. EFFIENT [Concomitant]
  4. GLUCOSAMINE 1500 COPMLEX [Concomitant]
  5. LIPITOR [Concomitant]
  6. LISINOPRIL [Concomitant]
  7. METROPROLOL SUCCINATE ER [Concomitant]
  8. OXYBUTYNIN CHLORIDE [Concomitant]
  9. VITAMIN B12 [Concomitant]
  10. VIT D3 [Concomitant]
  11. FISH OIL [Concomitant]
  12. SELENIUM [Concomitant]

REACTIONS (1)
  - Dysgeusia [Unknown]
